FAERS Safety Report 25583127 (Version 1)
Quarter: 2025Q3

REPORT INFORMATION
  Report Type: Spontaneous
  Country: US (occurrence: US)
  Receive Date: 20250721
  Receipt Date: 20250721
  Transmission Date: 20251021
  Serious: No
  Sender: PRINSTON PHARMACEUTICAL
  Company Number: US-PRINSTON PHARMACEUTICAL INC.-2024PRN00335

PATIENT
  Sex: Female

DRUGS (3)
  1. BUPROPION HYDROCHLORIDE [Suspect]
     Active Substance: BUPROPION HYDROCHLORIDE
     Indication: Major depression
  2. FAMOTIDINE [Concomitant]
     Active Substance: FAMOTIDINE
  3. RALOXIFENE [Concomitant]
     Active Substance: RALOXIFENE

REACTIONS (2)
  - Retching [Unknown]
  - Product odour abnormal [Unknown]
